FAERS Safety Report 9715776 (Version 2)
Quarter: 2013Q4

REPORT INFORMATION
  Report Type: Report from Study
  Country: SE (occurrence: SE)
  Receive Date: 20131127
  Receipt Date: 20131210
  Transmission Date: 20140711
  Serious: Yes (Hospitalization)
  Sender: FDA-Public Use
  Company Number: SE-ROCHE-1304353

PATIENT
  Age: 50 Year
  Sex: 0

DRUGS (2)
  1. BEVACIZUMAB [Suspect]
     Indication: BREAST CANCER
     Dosage: MOST RECENT DOSE ON 22/OCT/2013.
     Route: 065
  2. PACLITAXEL [Suspect]
     Indication: BREAST CANCER
     Dosage: MOST RECENT DOSE ON 29/OCT/2013.
     Route: 065

REACTIONS (1)
  - Tachycardia [Recovered/Resolved]
